FAERS Safety Report 8375529-4 (Version None)
Quarter: 2012Q1

REPORT INFORMATION
  Report Type: 
  Country: None (occurrence: None)
  Receive Date: 20120323
  Receipt Date: 20110808
  Transmission Date: 20120608
  Serious: Yes (Other)
  Sender: FDA-Public Use
  Company Number: 163-21880-11012917

PATIENT
  Age: 64 Year
  Sex: Male

DRUGS (11)
  1. MELPHALAN HYDROCHLORIDE [Suspect]
     Indication: MULTIPLE MYELOMA
     Dates: start: 20100601, end: 20100910
  2. CRESTOR [Concomitant]
  3. OSCAL (CALCIUM CARBONATE) [Concomitant]
  4. ZOMETA [Concomitant]
  5. CREON (PANCREATIN) (TABLETS) [Concomitant]
  6. VELCADE [Concomitant]
  7. DEXAMETHASONE [Concomitant]
  8. GLYBURIDE [Concomitant]
  9. PREDNISONE TAB [Concomitant]
  10. POTASSIUM CHLORIDE [Concomitant]
  11. REVLIMID [Suspect]
     Indication: MULTIPLE MYELOMA
     Dosage: 25 MG, DAILY FOR 21 DAYS; 7 DAYS OFF, REPEAT, PO
     Route: 048
     Dates: start: 20100528, end: 20110126

REACTIONS (3)
  - MULTIPLE MYELOMA [None]
  - PANCYTOPENIA [None]
  - BENIGN NEOPLASM OF THYROID GLAND [None]
